FAERS Safety Report 5614450-9 (Version None)
Quarter: 2008Q1

REPORT INFORMATION
  Report Type: 
  Country: None (occurrence: None)
  Receive Date: 20080130
  Receipt Date: 20080122
  Transmission Date: 20080703
  Serious: Yes (Other)
  Sender: FDA-Public Use
  Company Number: 2008AP000230

PATIENT
  Age: 39 Year
  Sex: Female

DRUGS (5)
  1. PAROXETINE HCL [Suspect]
     Indication: DEPRESSION
     Dosage: UNK TAB UNK ; UNK SYR UNK ; UNK TAB UNK ; 10 MG TAB UNK QD
     Dates: start: 20030101
  2. PAROXETINE HCL [Suspect]
     Indication: DEPRESSION
     Dosage: UNK TAB UNK ; UNK SYR UNK ; UNK TAB UNK ; 10 MG TAB UNK QD
     Dates: start: 20040206
  3. CITALOPRAM HYDROBROMIDE [Concomitant]
  4. DIAZEPAM [Concomitant]
  5. FLUOXETINE HCL [Concomitant]

REACTIONS (10)
  - AMNESIA [None]
  - DIZZINESS [None]
  - FEELING HOT [None]
  - HEADACHE [None]
  - MALAISE [None]
  - NAUSEA [None]
  - PANIC ATTACK [None]
  - TREMOR [None]
  - VOMITING [None]
  - WITHDRAWAL SYNDROME [None]
